FAERS Safety Report 9154763 (Version 2)
Quarter: 2013Q1

REPORT INFORMATION
  Report Type: Spontaneous
  Country: DK (occurrence: None)
  Receive Date: 20130208
  Receipt Date: 20130219
  Transmission Date: 20140127
  Serious: Yes (Hospitalization)
  Sender: FDA-Public Use
  Company Number: 2013MA000919

PATIENT
  Age: 79 Year
  Sex: Male

DRUGS (22)
  1. METFORMIN HYDROCHLORIDE EXTENDED-RELEASE TABLETS, 750 MG (PUREPAC) (METFORMIN HYDROCHLORIDE) [Suspect]
     Indication: PRODUCT USED FOR UNKNOWN INDICATION
     Dates: start: 2007, end: 20101207
  2. LEVEMIR [Suspect]
     Indication: TYPE 2 DIABETES MELLITUS
     Dates: start: 20100721, end: 20101207
  3. CARVEDILOL [Concomitant]
  4. LERCANIDIPINE [Concomitant]
  5. GLIMEPRIRIDE [Concomitant]
  6. CLOPIDOGREL [Concomitant]
  7. ENALAPRIL [Concomitant]
  8. PARACETAMOL [Concomitant]
  9. HYDROCHLOROTHIAZIDE [Concomitant]
  10. ACETYLSALICYLIC ACID [Concomitant]
  11. ISOSORBIDE MONONITRATE [Concomitant]
  12. TRAMADOL [Concomitant]
  13. SIMVASTATIN [Concomitant]
  14. GLYCERYL TRINITRATE [Concomitant]
  15. NATRIUMPICOSULFAT [Concomitant]
  16. LACTULOSE [Concomitant]
  17. DALTEPARIN [Concomitant]
  18. POTASSIUM [Concomitant]
  19. INSULIN HUMAN [Concomitant]
  20. FUROSEMIDE [Concomitant]
  21. ESOMEPRAZOLE [Concomitant]
  22. AMLODIPINE [Concomitant]

REACTIONS (1)
  - Hypoglycaemia [None]
